FAERS Safety Report 7276676-0 (Version None)
Quarter: 2011Q1

REPORT INFORMATION
  Report Type: 
  Country: None (occurrence: None)
  Receive Date: 20110204
  Receipt Date: 20110201
  Transmission Date: 20110831
  Serious: Yes (Hospitalization)
  Sender: FDA-Public Use
  Company Number: GB-MERCK-0910GBR00060

PATIENT
  Age: 42 Year
  Sex: Female

DRUGS (11)
  1. RITONAVIR [Suspect]
     Route: 048
     Dates: start: 20081023
  2. RITONAVIR [Suspect]
     Indication: HIV INFECTION
     Route: 048
     Dates: start: 20060905, end: 20081022
  3. EMTRICITABINE AND TENOFOVIR DISOPROXIL FUMARATE [Suspect]
     Indication: HIV INFECTION
     Route: 065
     Dates: start: 20060905, end: 20081023
  4. ETRAVIRINE [Suspect]
     Route: 048
     Dates: start: 20081023
  5. TIPRANAVIR [Suspect]
     Indication: HIV INFECTION
     Route: 048
     Dates: start: 20060905, end: 20081023
  6. INSULIN [Concomitant]
     Indication: GESTATIONAL DIABETES
     Route: 065
  7. ZIDOVUDINE [Concomitant]
     Route: 042
  8. ISENTRESS [Suspect]
     Indication: HIV INFECTION
     Route: 065
     Dates: start: 20081023
  9. DARUNAVIR [Suspect]
     Indication: HIV INFECTION
     Route: 048
     Dates: start: 20081023
  10. NITROUS OXIDE AND OXYGEN [Concomitant]
     Route: 055
  11. PREDNISOLONE [Concomitant]
     Route: 065

REACTIONS (2)
  - DRUG EXPOSURE DURING PREGNANCY [None]
  - PREMATURE LABOUR [None]
